FAERS Safety Report 8885642 (Version 2)
Quarter: 2013Q1

REPORT INFORMATION
  Report Type: Spontaneous
  Country: BR (occurrence: BR)
  Receive Date: 20121105
  Receipt Date: 20130123
  Transmission Date: 20140127
  Serious: Yes (Other)
  Sender: FDA-Public Use
  Company Number: PHHY2012BR097995

PATIENT
  Age: 51 Year
  Sex: Male
  Weight: 80 kg

DRUGS (11)
  1. NITRODERM TTS [Suspect]
     Indication: ANGINA PECTORIS
     Dosage: 1 PATCH A DAY
     Route: 062
     Dates: start: 20121016
  2. MONOCORDIL [Suspect]
     Dosage: 1 DF, TID
     Route: 048
  3. DIOVAN [Suspect]
     Indication: BLOOD PRESSURE
     Dosage: 320 MG, IN THE MORNING
     Route: 048
     Dates: start: 20090317, end: 200911
  4. DIOVAN [Suspect]
     Dosage: 160 MG, IN THE MORNING
     Route: 048
     Dates: start: 20091130
  5. ATACAND [Suspect]
     Indication: HEART RATE ABNORMAL
     Dosage: 1 TABLET A DAY
     Route: 048
     Dates: start: 2010
  6. ATACAND [Suspect]
     Indication: BLOOD PRESSURE
  7. SUSTRATE [Suspect]
     Indication: CHEST PAIN
     Dosage: 10 MG, QD
     Route: 048
  8. LIPITOR [Concomitant]
     Indication: BLOOD CHOLESTEROL
     Dosage: 1 TABLET A DAY
     Dates: start: 2009
  9. VASTAREL [Concomitant]
     Indication: CARDIAC DISORDER
     Dosage: 2 TABLETS A DAY
  10. RIVOTRIL [Concomitant]
     Indication: INSOMNIA
     Dosage: 1 DF, QD
  11. CITALOPRAM [Concomitant]
     Indication: DEPRESSION
     Dosage: 20 MG, UNK

REACTIONS (4)
  - Angina pectoris [Not Recovered/Not Resolved]
  - Chest pain [Not Recovered/Not Resolved]
  - Fear of disease [Recovering/Resolving]
  - Headache [Not Recovered/Not Resolved]
